FAERS Safety Report 6618689-5 (Version None)
Quarter: 2010Q1

REPORT INFORMATION
  Report Type: 
  Country: None (occurrence: None)
  Receive Date: 20100308
  Receipt Date: 20091027
  Transmission Date: 20100710
  Serious: Yes (Hospitalization)
  Sender: FDA-Public Use
  Company Number: GB-CELGENEUS-AZAUK200700410

PATIENT
  Sex: Male

DRUGS (4)
  1. VIDAZA [Suspect]
     Route: 058
     Dates: start: 20070730, end: 20071221
  2. VALPROATE SODIUM [Suspect]
     Route: 048
     Dates: start: 20070730, end: 20070827
  3. THEOPHYLLINE [Suspect]
     Route: 048
     Dates: start: 20070730, end: 20070827
  4. ATRA [Suspect]
     Route: 048
     Dates: start: 20070730, end: 20070827

REACTIONS (8)
  - CHILLS [None]
  - DIARRHOEA [None]
  - FATIGUE [None]
  - LOWER RESPIRATORY TRACT INFECTION [None]
  - NEUTROPENIA [None]
  - OEDEMA PERIPHERAL [None]
  - ORAL PAIN [None]
  - PYREXIA [None]
